FAERS Safety Report 10341613 (Version 1)
Quarter: 2014Q3

REPORT INFORMATION
  Report Type: Spontaneous
  Country: US (occurrence: None)
  Receive Date: 20140724
  Receipt Date: 20140724
  Transmission Date: 20150326
  Serious: No
  Sender: FDA-Public Use
  Company Number: None

PATIENT

DRUGS (3)
  1. DUONEB [Suspect]
     Active Substance: ALBUTEROL SULFATE\IPRATROPIUM BROMIDE
  2. FORADIL [Suspect]
     Active Substance: FORMOTEROL FUMARATE
  3. COMBIVENT [Suspect]
     Active Substance: ALBUTEROL SULFATE\IPRATROPIUM BROMIDE

REACTIONS (14)
  - Wheezing [None]
  - Fatigue [None]
  - Heart rate irregular [None]
  - Insomnia [None]
  - Palpitations [None]
  - Respiratory rate increased [None]
  - Myalgia [None]
  - Restlessness [None]
  - Chest discomfort [None]
  - Asthenia [None]
  - Hyperventilation [None]
  - Multiple drug therapy [None]
  - Dyspnoea [None]
  - Prescribed overdose [None]
